FAERS Safety Report 22360805 (Version 1)
Quarter: 2023Q2

REPORT INFORMATION
  Report Type: Spontaneous
  Country: US (occurrence: US)
  Receive Date: 20230524
  Receipt Date: 20230524
  Transmission Date: 20230721
  Serious: No
  Sender: FDA-Public Use
  Company Number: US-Accord-279456

PATIENT
  Age: 77 Year
  Sex: Female
  Weight: 108.86 kg

DRUGS (1)
  1. QUETIAPINE [Suspect]
     Active Substance: QUETIAPINE
     Indication: Insomnia
     Dosage: AT BEDTIME
     Route: 048
     Dates: start: 20220920

REACTIONS (4)
  - Somnolence [Recovering/Resolving]
  - Product dose omission issue [Unknown]
  - Poor quality sleep [Unknown]
  - Off label use [Unknown]

NARRATIVE: CASE EVENT DATE: 20220921
